FAERS Safety Report 5232031-6 (Version None)
Quarter: 2007Q1

REPORT INFORMATION
  Report Type: 
  Country: None (occurrence: None)
  Receive Date: 20070206
  Receipt Date: 20070125
  Transmission Date: 20070707
  Serious: Yes (Hospitalization)
  Sender: FDA-Public Use
  Company Number: FR-PFIZER INC-2007008655

PATIENT
  Age: 52 Year
  Sex: Female

DRUGS (5)
  1. ATARAX [Suspect]
     Dosage: DAILY DOSE:25MG
     Route: 048
  2. REMICADE [Suspect]
     Dosage: DAILY DOSE:500MG
     Route: 042
  3. ZOLPIDEM TARTRATE [Suspect]
     Dosage: DAILY DOSE:10MG
     Route: 048
     Dates: start: 19940101, end: 20061222
  4. ALDALIX [Suspect]
     Dosage: TEXT:50 MG/ 20 MG
     Route: 048
  5. AUGMENTIN '125' [Concomitant]
     Indication: BRONCHITIS

REACTIONS (2)
  - DYSPNOEA [None]
  - FACE OEDEMA [None]
